FAERS Safety Report 18193518 (Version 1)
Quarter: 2020Q3

REPORT INFORMATION
  Report Type: Spontaneous
  Country: FR (occurrence: FR)
  Receive Date: 20200825
  Receipt Date: 20200825
  Transmission Date: 20201103
  Serious: Yes (Hospitalization)
  Sender: FDA-Public Use
  Company Number: FR-MYLANLABS-2020M1074059

PATIENT
  Age: 69 Year
  Sex: Male

DRUGS (4)
  1. OLANZAPINE. [Suspect]
     Active Substance: OLANZAPINE
     Indication: OBSESSIVE-COMPULSIVE DISORDER
     Dosage: 10 MILLIGRAM, QD
     Route: 065
  2. SERTRALINE [Suspect]
     Active Substance: SERTRALINE HYDROCHLORIDE
     Indication: OBSESSIVE-COMPULSIVE DISORDER
     Dosage: 200 MILLIGRAM, QD
     Route: 065
  3. OLANZAPINE. [Suspect]
     Active Substance: OLANZAPINE
     Dosage: 7.6 MILLIGRAM
     Route: 065
  4. SERTRALINE [Suspect]
     Active Substance: SERTRALINE HYDROCHLORIDE
     Dosage: 100 UNK
     Route: 065

REACTIONS (9)
  - Reduced facial expression [Unknown]
  - Suicidal ideation [Unknown]
  - Drug hypersensitivity [Unknown]
  - Hallucination, visual [Unknown]
  - Extrapyramidal disorder [Unknown]
  - Fall [Unknown]
  - Dyskinesia [Unknown]
  - Gait disturbance [Unknown]
  - Irritability [Unknown]
